FAERS Safety Report 5318450-8 (Version None)
Quarter: 2007Q2

REPORT INFORMATION
  Report Type: 
  Country: None (occurrence: None)
  Receive Date: 20070430
  Receipt Date: 20070416
  Transmission Date: 20071010
  Serious: Yes (Hospitalization)
  Sender: FDA-Public Use
  Company Number: T200700428

PATIENT
  Age: 66 Year
  Sex: Female

DRUGS (2)
  1. OPTIRAY 160 [Suspect]
     Indication: COMPUTERISED TOMOGRAM
     Dosage: 125 ML, SINGLE, INTRAVENOUS
     Route: 042
     Dates: start: 20070410, end: 20070410
  2. OPTIRAY 160 [Suspect]

REACTIONS (4)
  - COMPARTMENT SYNDROME [None]
  - DRUG ADMINISTRATION ERROR [None]
  - INJECTION SITE EXTRAVASATION [None]
  - INJECTION SITE NECROSIS [None]
